FAERS Safety Report 7925515-0 (Version None)
Quarter: 2011Q4

REPORT INFORMATION
  Report Type: 
  Country: None (occurrence: None)
  Receive Date: 20111118
  Receipt Date: 20101103
  Transmission Date: 20120403
  Serious: No
  Sender: FDA-Public Use
  Company Number: US-AMGEN-USASP2010003423

PATIENT
  Sex: Female

DRUGS (1)
  1. ENBREL [Suspect]
     Indication: RHEUMATOID ARTHRITIS
     Dosage: 50 MG, 2 TIMES/WK
     Dates: start: 20020101

REACTIONS (6)
  - ORAL PAIN [None]
  - MIGRAINE [None]
  - RASH MACULAR [None]
  - RASH PAPULAR [None]
  - PAIN OF SKIN [None]
  - OROPHARYNGEAL BLISTERING [None]
